FAERS Safety Report 16473657 (Version 6)
Quarter: 2019Q3

REPORT INFORMATION
  Report Type: Spontaneous
  Country: DE (occurrence: DE)
  Receive Date: 20190625
  Receipt Date: 20190902
  Transmission Date: 20191004
  Serious: Yes (Hospitalization)
  Sender: FDA-Public Use
  Company Number: DE-ROCHE-2336543

PATIENT
  Sex: Male
  Weight: 101 kg

DRUGS (15)
  1. CANDESARTAN. [Concomitant]
     Active Substance: CANDESARTAN
     Route: 065
  2. AMINEURIN [Concomitant]
     Active Substance: AMITRIPTYLINE HYDROCHLORIDE
     Route: 065
  3. ELIQUIS [Concomitant]
     Active Substance: APIXABAN
     Route: 065
  4. FAMPYRA [Concomitant]
     Active Substance: DALFAMPRIDINE
     Route: 065
  5. OCREVUS [Suspect]
     Active Substance: OCRELIZUMAB
     Indication: MULTIPLE SCLEROSIS
     Route: 042
     Dates: start: 20190305
  6. OCREVUS [Suspect]
     Active Substance: OCRELIZUMAB
     Route: 042
     Dates: start: 20190319
  7. LYRICA [Concomitant]
     Active Substance: PREGABALIN
     Route: 065
  8. CARBAMAZEPIN [Concomitant]
     Active Substance: CARBAMAZEPINE
     Route: 065
  9. TYSABRI [Suspect]
     Active Substance: NATALIZUMAB
     Indication: MULTIPLE SCLEROSIS
     Dosage: THE PATIENT RECEIVED THE LAST ADMINISTRATION OF TYSABRI ON 07/JAN/2019
     Route: 042
     Dates: start: 201901
  10. FAMPYRA [Suspect]
     Active Substance: DALFAMPRIDINE
     Indication: PRODUCT USED FOR UNKNOWN INDICATION
     Dosage: PROLONGED-RELEASE TABLET
     Route: 065
  11. LIORESAL [Concomitant]
     Active Substance: BACLOFEN
     Route: 065
  12. AMLODIPINE [Concomitant]
     Active Substance: AMLODIPINE BESYLATE
     Route: 065
  13. SIMVAHEXAL [Concomitant]
     Active Substance: SIMVASTATIN
     Route: 065
  14. CELSENTRI [Concomitant]
     Active Substance: MARAVIROC
     Route: 065
  15. TYSABRI [Suspect]
     Active Substance: NATALIZUMAB
     Dosage: THE PATIENT RECEIVED THE LAST ADMINISTRATION OF TYSABRI ON 07/JAN/2019
     Route: 065
     Dates: start: 20120424

REACTIONS (2)
  - Deep vein thrombosis [Unknown]
  - Progressive multifocal leukoencephalopathy [Recovered/Resolved]

NARRATIVE: CASE EVENT DATE: 201903
